FAERS Safety Report 4610105-8 (Version None)
Quarter: 2005Q1

REPORT INFORMATION
  Report Type: 
  Country: None (occurrence: None)
  Receive Date: 20050316
  Receipt Date: 20040322
  Transmission Date: 20050727
  Serious: No
  Sender: FDA-Public Use
  Company Number: US-GLAXOSMITHKLINE-A0503858A

PATIENT
  Age: 35 Year
  Sex: Female

DRUGS (3)
  1. COMPAZINE [Suspect]
     Indication: VOMITING
     Dosage: 10MG SIX TIMES PER DAY
     Route: 048
     Dates: start: 20040317, end: 20040320
  2. TAXOL [Concomitant]
  3. CARBOPLATIN [Concomitant]

REACTIONS (2)
  - DYSPNOEA [None]
  - SWOLLEN TONGUE [None]
